FAERS Safety Report 9222525 (Version 1)
Quarter: 2013Q1

REPORT INFORMATION
  Report Type: Spontaneous
  Country: US (occurrence: None)
  Receive Date: 20120914
  Receipt Date: 20120914
  Transmission Date: 20140127
  Serious: Yes (Death)
  Sender: FDA-Public Use
  Company Number: JPI-P-013321

PATIENT
  Age: 34 Year
  Sex: Female

DRUGS (1)
  1. XYREM (500  MILLIGRAM/MILLILITERS, SOLUTION)(SODIUM OXYBATE) [Suspect]
     Indication: CATAPLEXY
     Dosage: 4.5 GM (2.25 GM  2 IN 1 D)
     Route: 048
     Dates: start: 20080617, end: 200810

REACTIONS (1)
  - Completed suicide [None]
